FAERS Safety Report 6783408-9 (Version None)
Quarter: 2010Q2

REPORT INFORMATION
  Report Type: 
  Country: None (occurrence: None)
  Receive Date: 20100622
  Receipt Date: 20100621
  Transmission Date: 20101027
  Serious: Yes (Hospitalization)
  Sender: FDA-Public Use
  Company Number: US-B.I. PHARMACEUTICALS,INC./RIDGEFIELD-2010-BP-05607BP

PATIENT
  Age: 75 Year
  Sex: Female

DRUGS (7)
  1. COMBIVENT [Suspect]
     Indication: ASTHMA
     Dosage: 8 PUF
     Route: 055
     Dates: start: 19970101
  2. COMBIVENT [Suspect]
     Indication: CHRONIC OBSTRUCTIVE PULMONARY DISEASE
  3. SYMBICORT [Concomitant]
     Indication: ASTHMA
  4. LEVOTHYROXINE SODIUM [Concomitant]
     Indication: HYPOTHYROIDISM
  5. XYZAL [Concomitant]
     Indication: HYPERSENSITIVITY
  6. DONNATOL [Concomitant]
     Indication: ABDOMINAL DISCOMFORT
  7. NYSTATIN [Concomitant]
     Indication: CANDIDIASIS

REACTIONS (2)
  - PNEUMONIA [None]
  - RIB FRACTURE [None]
